FAERS Safety Report 5830640-4 (Version None)
Quarter: 2008Q3

REPORT INFORMATION
  Report Type: 
  Country: None (occurrence: None)
  Receive Date: 20080801
  Receipt Date: 20070904
  Transmission Date: 20090109
  Serious: Yes (Other)
  Sender: FDA-Public Use
  Company Number: US-BRISTOL-MYERS SQUIBB COMPANY-13896626

PATIENT
  Age: 90 Year
  Sex: Male
  Weight: 79 kg

DRUGS (14)
  1. COUMADIN [Suspect]
     Indication: DEEP VEIN THROMBOSIS
     Dosage: 5MG-1X WEEK
     Dates: start: 20030101
  2. MECLIZINE [Concomitant]
  3. SIMVASTATIN [Concomitant]
  4. TERAZOSIN HCL [Concomitant]
  5. BISACODYL [Concomitant]
  6. GLIPIZIDE (INV) [Concomitant]
  7. LISINOPRIL [Concomitant]
  8. METFORMIN HCL [Concomitant]
  9. FLONASE [Concomitant]
  10. CLARITIN [Concomitant]
  11. MULTI-VITAMIN [Concomitant]
  12. GLUCOSAMINE [Concomitant]
  13. CALCIUM + VITAMIN D [Concomitant]
  14. CHONDROITIN [Concomitant]

REACTIONS (1)
  - INTERNATIONAL NORMALISED RATIO FLUCTUATION [None]
